FAERS Safety Report 13898911 (Version 1)
Quarter: 2017Q3

REPORT INFORMATION
  Report Type: Spontaneous
  Country: US (occurrence: None)
  Receive Date: 20170817
  Receipt Date: 20170817
  Transmission Date: 20171127
  Serious: No
  Sender: FDA-Public Use
  Company Number: None

PATIENT
  Age: 58 Year
  Sex: Female

DRUGS (1)
  1. HARVONI [Suspect]
     Active Substance: LEDIPASVIR\SOFOSBUVIR
     Dosage: 90-400MG QD PO
     Route: 048

REACTIONS (4)
  - Vomiting [None]
  - Nausea [None]
  - Abdominal discomfort [None]
  - Syncope [None]

NARRATIVE: CASE EVENT DATE: 20170817
